FAERS Safety Report 17036547 (Version 2)
Quarter: 2019Q4

REPORT INFORMATION
  Report Type: Report from Study
  Country: US (occurrence: US)
  Receive Date: 20191115
  Receipt Date: 20191127
  Transmission Date: 20200122
  Serious: Yes (Hospitalization, Other)
  Sender: FDA-Public Use
  Company Number: US-MALLINCKRODT-T201907132

PATIENT
  Age: 8 Month
  Sex: Female
  Weight: 7 kg

DRUGS (1)
  1. REPOSITORY CORTICOTROPIN INJECTION [Suspect]
     Active Substance: CORTICOTROPIN
     Indication: INFANTILE SPASMS
     Dosage: 0.34ML TWICE DAILY FOR TWO WEEKS, THEN TAPER
     Route: 065
     Dates: start: 20191015, end: 20191113

REACTIONS (5)
  - Irritability [Recovered/Resolved]
  - Infantile spasms [Not Recovered/Not Resolved]
  - Rash [Recovered/Resolved]
  - Vomiting [Unknown]
  - Decreased appetite [Unknown]

NARRATIVE: CASE EVENT DATE: 201910
